FAERS Safety Report 8372616-1 (Version None)
Quarter: 2012Q2

REPORT INFORMATION
  Report Type: 
  Country: None (occurrence: None)
  Receive Date: 20120521
  Receipt Date: 20120516
  Transmission Date: 20120825
  Serious: Yes (Hospitalization, Other)
  Sender: FDA-Public Use
  Company Number: PHEH2012US007485

PATIENT
  Sex: Male

DRUGS (13)
  1. EXJADE [Suspect]
     Indication: SICKLE CELL ANAEMIA
     Dosage: 1000 MG, DAILY
     Route: 048
     Dates: start: 20100928
  2. SODIUM BICARBONATE [Concomitant]
     Dosage: 650 MG, BID
  3. OMEPRAZOLE [Concomitant]
     Dosage: 40 MG, BID
  4. FUROSEMIDE [Concomitant]
     Dosage: 40 MG, DAILY
  5. MS CONTIN [Concomitant]
     Dosage: 30 MG, BID
  6. EPOGEN [Concomitant]
     Dosage: 40000 U, WEEKLY
  7. FLOMAX [Concomitant]
     Dosage: 0.4 MG, DAILY
  8. ARANESP [Concomitant]
  9. VITAMIN D [Concomitant]
     Dosage: 50000 U, WEEKLY
  10. MORPHINE SULFATE [Concomitant]
     Dosage: 15 MG, PRN
  11. AMLODIPINE BESYLATE [Concomitant]
     Dosage: 5 MG, DAILY
  12. MAGNESIUM OXIDE [Concomitant]
     Dosage: 400 MG, BID
  13. FOLIC ACID [Concomitant]
     Dosage: 1 MG, DAILY

REACTIONS (10)
  - BACK PAIN [None]
  - SICKLE CELL ANAEMIA WITH CRISIS [None]
  - PAIN [None]
  - ANAEMIA [None]
  - PAIN IN EXTREMITY [None]
  - GASTROINTESTINAL HAEMORRHAGE [None]
  - OESOPHAGEAL ULCER [None]
  - LARGE INTESTINAL ULCER [None]
  - SERUM FERRITIN INCREASED [None]
  - MALAISE [None]
